FAERS Safety Report 10031285 (Version 3)
Quarter: 2014Q3

REPORT INFORMATION
  Report Type: Report from Study
  Country: US (occurrence: US)
  Receive Date: 20140324
  Receipt Date: 20140822
  Transmission Date: 20150326
  Serious: Yes (Other)
  Sender: FDA-Public Use
  Company Number: US-BRISTOL-MYERS SQUIBB COMPANY-20227864

PATIENT
  Age: 61 Year
  Sex: Male
  Weight: 104 kg

DRUGS (2)
  1. IPILIMUMAB [Suspect]
     Active Substance: IPILIMUMAB
     Indication: MALIGNANT MELANOMA
     Dosage: LAST DOSE:30APR13?DOSES HELD ON 21MAY13,11JUN13?TOTAL DOSE:1040 MG
     Route: 042
     Dates: start: 20130409
  2. AZITHROMYCIN [Concomitant]
     Active Substance: AZITHROMYCIN ANHYDROUS
     Dosage: 2 DAYS 29APR13 THEN 2 DAILY FOR 4 DAYS
     Route: 042

REACTIONS (2)
  - Colitis [Not Recovered/Not Resolved]
  - Hypertension [Not Recovered/Not Resolved]
